FAERS Safety Report 4556146-0 (Version None)
Quarter: 2005Q1

REPORT INFORMATION
  Report Type: 
  Country: None (occurrence: None)
  Receive Date: 20050114
  Receipt Date: 20050105
  Transmission Date: 20050727
  Serious: Yes (Hospitalization)
  Sender: FDA-Public Use
  Company Number: 2005006805

PATIENT
  Age: 80 Year
  Sex: Male

DRUGS (12)
  1. LINEZOLID SOLUTION, STERILE (LINEZOLID) [Suspect]
     Indication: PNEUMONIA STAPHYLOCOCCAL
     Dosage: 600 MG, INTRAVENOUS
     Route: 042
     Dates: start: 20041123, end: 20041207
  2. RIFAMPICIN [Suspect]
     Indication: PNEUMONIA STAPHYLOCOCCAL
     Dosage: 600 MG, INTRAVENOUS
     Route: 042
     Dates: start: 20041123, end: 20041124
  3. PHENYTOIN [Concomitant]
  4. OMEPRAZOLE [Concomitant]
  5. ACETAMINOPHEN [Concomitant]
  6. ASPIRIN [Concomitant]
  7. NULYTELY (MACROGOL, POTASSIUM CHLORIDE, SODIUM BICARBONATE, SODIUM CHL [Concomitant]
  8. LEVOKIT CA (CALCIUM CARBONATE, COLECALCIFEROL) [Concomitant]
  9. HEPARIN-FRACTION, SODIUM SALT (HEPARIN-FRACTION, SODIUM SALT) [Concomitant]
  10. MEROPENEM (MEROPENEM) [Concomitant]
  11. CIPROFLOXACIN [Concomitant]
  12. METRONIDAZOLE [Concomitant]

REACTIONS (2)
  - DRUG INTERACTION [None]
  - EPILEPSY [None]
